FAERS Safety Report 9528904 (Version 2)
Quarter: 2013Q3

REPORT INFORMATION
  Report Type: Spontaneous
  Country: US (occurrence: US)
  Receive Date: 20130917
  Receipt Date: 20130917
  Transmission Date: 20140515
  Serious: No
  Sender: FDA-Public Use
  Company Number: US-BANPHARM-20131159

PATIENT
  Age: 67 Year
  Sex: Male
  Weight: 107.95 kg

DRUGS (2)
  1. ZYRTEC LIQUID GELS 10 MG [Suspect]
     Indication: HYPERSENSITIVITY
     Dosage: 1 DF, QD (AT NIGHT),
     Route: 048
     Dates: start: 20130313
  2. BLOOD PRESSURE MEDICATION [Concomitant]
     Indication: BLOOD PRESSURE
     Dosage: 1 DF, QD,

REACTIONS (1)
  - Somnolence [Not Recovered/Not Resolved]
